FAERS Safety Report 10554959 (Version 2)
Quarter: 2015Q2

REPORT INFORMATION
  Report Type: Report from Study
  Country: IN (occurrence: IN)
  Receive Date: 20141030
  Receipt Date: 20150605
  Transmission Date: 20150821
  Serious: Yes (Death, Hospitalization, Other)
  Sender: FDA-Public Use
  Company Number: IN-GLAXOSMITHKLINE-IN2014GSK008567

PATIENT
  Age: 38 Year
  Sex: Female

DRUGS (1)
  1. PAZOPANIB [Suspect]
     Active Substance: PAZOPANIB
     Indication: RENAL CELL CARCINOMA
     Dosage: 400 MG, BID
     Route: 048
     Dates: start: 201407

REACTIONS (3)
  - Peripheral swelling [Unknown]
  - Myocardial infarction [Fatal]
  - Urinary retention [Unknown]
